FAERS Safety Report 7776256-4 (Version None)
Quarter: 2011Q3

REPORT INFORMATION
  Report Type: 
  Country: None (occurrence: None)
  Receive Date: 20110921
  Receipt Date: 20110921
  Transmission Date: 20111222
  Serious: Yes (Life-Threatening, Disabling, Other)
  Sender: FDA-Public Use
  Company Number: None

PATIENT
  Sex: Female
  Weight: 46.7205 kg

DRUGS (1)
  1. LEVOFLOXACIN [Suspect]

REACTIONS (12)
  - OESOPHAGEAL PAIN [None]
  - NAUSEA [None]
  - SKIN TURGOR DECREASED [None]
  - ARTHRALGIA [None]
  - NEURALGIA [None]
  - PALPITATIONS [None]
  - IMPAIRED WORK ABILITY [None]
  - TENDONITIS [None]
  - PAIN [None]
  - SKIN ATROPHY [None]
  - MYALGIA [None]
  - CHORDAE TENDINAE RUPTURE [None]
